FAERS Safety Report 10930315 (Version 1)
Quarter: 2015Q1

REPORT INFORMATION
  Report Type: Spontaneous
  Country: US (occurrence: US)
  Receive Date: 20150319
  Receipt Date: 20150319
  Transmission Date: 20150721
  Serious: No
  Sender: FDA-Public Use
  Company Number: US-PFIZER INC-2015095516

PATIENT
  Age: 4 Decade
  Sex: Male

DRUGS (1)
  1. VIAGRA [Suspect]
     Active Substance: SILDENAFIL CITRATE
     Indication: ERECTILE DYSFUNCTION
     Dosage: TOOK 3 AT ONE TIME (150 MG)
     Route: 048
     Dates: start: 20150312, end: 20150312

REACTIONS (5)
  - Intentional product use issue [Recovered/Resolved]
  - Semen volume increased [Unknown]
  - Erection increased [Not Recovered/Not Resolved]
  - Ejaculation disorder [Unknown]
  - Semen analysis abnormal [Unknown]

NARRATIVE: CASE EVENT DATE: 20150312
